FAERS Safety Report 13450842 (Version 1)
Quarter: 2017Q2

REPORT INFORMATION
  Report Type: Spontaneous
  Country: US (occurrence: US)
  Receive Date: 20170417
  Receipt Date: 20170417
  Transmission Date: 20170830
  Serious: Yes (Other)
  Sender: FDA-Public Use
  Company Number: None

PATIENT
  Age: 63 Year
  Sex: Female
  Weight: 153 kg

DRUGS (2)
  1. METROPOLOL [Concomitant]
     Active Substance: METOPROLOL
  2. ELIQUIS [Suspect]
     Active Substance: APIXABAN
     Indication: CARDIAC ABLATION
     Route: 048
     Dates: start: 20160119, end: 20170102

REACTIONS (2)
  - Visual impairment [None]
  - Retinal haemorrhage [None]

NARRATIVE: CASE EVENT DATE: 20170102
